FAERS Safety Report 7486502-2 (Version None)
Quarter: 2011Q2

REPORT INFORMATION
  Report Type: 
  Country: None (occurrence: None)
  Receive Date: 20110517
  Receipt Date: 20110509
  Transmission Date: 20111010
  Serious: Yes (Hospitalization)
  Sender: FDA-Public Use
  Company Number: GB-PFIZER INC-2011099726

PATIENT
  Age: 5 Year

DRUGS (12)
  1. CEFOTAXIME [Concomitant]
     Indication: PNEUMONIA MYCOPLASMAL
  2. PIPERACILLIN [Concomitant]
     Indication: PNEUMONIA MYCOPLASMAL
  3. CLONAZEPAM [Concomitant]
  4. ERYTHROMYCIN [Concomitant]
     Indication: PNEUMONIA MYCOPLASMAL
  5. DIAZEPAM [Concomitant]
  6. GENTAMICIN [Concomitant]
     Indication: PNEUMONIA MYCOPLASMAL
  7. PARALDEHYDE [Concomitant]
  8. LAMOTRIGINE [Suspect]
     Indication: CONVULSION
  9. PHENYTOIN [Suspect]
     Indication: STATUS EPILEPTICUS
  10. VALPROATE SODIUM [Suspect]
  11. THIOPENTAL SODIUM [Concomitant]
  12. CLOBAZAM [Suspect]

REACTIONS (4)
  - BRAIN OEDEMA [None]
  - MYCOPLASMA INFECTION [None]
  - STATUS EPILEPTICUS [None]
  - HYPOXIC-ISCHAEMIC ENCEPHALOPATHY [None]
